FAERS Safety Report 12495893 (Version 3)
Quarter: 2017Q2

REPORT INFORMATION
  Report Type: Spontaneous
  Country: US (occurrence: US)
  Receive Date: 20160624
  Receipt Date: 20170623
  Transmission Date: 20170830
  Serious: No
  Sender: FDA-Public Use
  Company Number: US-BAUSCH-BL-2016-010191

PATIENT
  Age: 71 Year
  Sex: Female
  Weight: 61.29 kg

DRUGS (2)
  1. JUBLIA [Suspect]
     Active Substance: EFINACONAZOLE
     Indication: ONYCHOMYCOSIS
     Dosage: ONE TIME DAILY
     Route: 061
     Dates: start: 2014
  2. JUBLIA [Suspect]
     Active Substance: EFINACONAZOLE
     Dosage: APPLIED TO THE AFFECTED TOES ONE TIME DAILY AND SOMETIMES APPLIED ANOTHER COAT AT NIGHT
     Route: 061

REACTIONS (1)
  - Drug ineffective [Not Recovered/Not Resolved]

NARRATIVE: CASE EVENT DATE: 2014
